FAERS Safety Report 23040243 (Version 1)
Quarter: 2023Q4

REPORT INFORMATION
  Report Type: Spontaneous
  Country: CA (occurrence: CA)
  Receive Date: 20231006
  Receipt Date: 20231006
  Transmission Date: 20240109
  Serious: Yes (Other)
  Sender: FDA-Public Use
  Company Number: CA-PFIZER INC-202300157674

PATIENT
  Age: 58 Year
  Sex: Female

DRUGS (3)
  1. XELJANZ XR [Suspect]
     Active Substance: TOFACITINIB CITRATE
     Indication: Rheumatoid arthritis
     Dosage: 11 MG, 1X/DAY
     Route: 048
     Dates: start: 20230420
  2. METHOTREXATE SODIUM [Concomitant]
     Active Substance: METHOTREXATE SODIUM
     Dosage: 1 DF, WEEKLY
  3. PREDNISONE [Concomitant]
     Active Substance: PREDNISONE
     Dosage: 1 DF (10 MG), DAILY

REACTIONS (12)
  - Blood pressure systolic increased [Unknown]
  - Arthritis [Not Recovered/Not Resolved]
  - Malocclusion [Not Recovered/Not Resolved]
  - Therapeutic product effect incomplete [Unknown]
  - Heart rate increased [Unknown]
  - Sensory disturbance [Unknown]
  - Diarrhoea [Recovered/Resolved]
  - Dizziness [Unknown]
  - Jaw clicking [Not Recovered/Not Resolved]
  - Jaw disorder [Not Recovered/Not Resolved]
  - Joint dislocation [Unknown]
  - Speech disorder [Unknown]

NARRATIVE: CASE EVENT DATE: 20230401
